FAERS Safety Report 10412528 (Version 1)
Quarter: 2014Q2

REPORT INFORMATION
  Report Type: Spontaneous
  Country: US (occurrence: None)
  Receive Date: 20140604
  Receipt Date: 20140604
  Transmission Date: 20141212
  Serious: Yes (Other)
  Sender: FDA-Public Use
  Company Number: 163-POMAL-14033043

PATIENT
  Age: 65 Year
  Sex: Male

DRUGS (1)
  1. POMALYST (POMALIDOMIDE) (1 MILLIGRAM, CAPSULES) [Suspect]
     Indication: PLASMA CELL MYELOMA
     Route: 048
     Dates: start: 201304

REACTIONS (3)
  - Haemoglobin decreased [None]
  - White blood cell count decreased [None]
  - Plasma cell myeloma [None]
